FAERS Safety Report 4717446-4 (Version None)
Quarter: 2005Q3

REPORT INFORMATION
  Report Type: 
  Country: None (occurrence: None)
  Receive Date: 20050715
  Receipt Date: 20050630
  Transmission Date: 20060218
  Serious: Yes (Hospitalization)
  Sender: FDA-Public Use
  Company Number: 2005BI012585

PATIENT
  Sex: Female

DRUGS (2)
  1. AVONEX [Suspect]
     Indication: MULTIPLE SCLEROSIS
     Dosage: 30 UG; QW; IM
     Route: 030
     Dates: start: 19981201
  2. AVONEX [Suspect]
     Indication: MULTIPLE SCLEROSIS
     Dosage: 30 UG; QW; IM
     Route: 030

REACTIONS (9)
  - AMNESIA [None]
  - DYSSTASIA [None]
  - GAIT DISTURBANCE [None]
  - GOUT [None]
  - MULTIPLE SCLEROSIS [None]
  - PELVIC FRACTURE [None]
  - PHARYNGITIS STREPTOCOCCAL [None]
  - PNEUMONIA [None]
  - STREPTOCOCCAL BACTERAEMIA [None]
